FAERS Safety Report 13455983 (Version 1)
Quarter: 2017Q2

REPORT INFORMATION
  Report Type: Spontaneous
  Country: US (occurrence: US)
  Receive Date: 20170419
  Receipt Date: 20170419
  Transmission Date: 20170830
  Serious: No
  Sender: FDA-Public Use
  Company Number: US-TARO-2016TAR00989

PATIENT
  Sex: Male
  Weight: 74.83 kg

DRUGS (6)
  1. FLUOROURACIL TOPICAL CREAM USP 5% [Suspect]
     Active Substance: FLUOROURACIL
     Indication: HYPERKERATOSIS
     Dosage: UNK
     Dates: start: 2015
  2. RYTARY [Concomitant]
     Active Substance: CARBIDOPA\LEVODOPA
     Dosage: 275 MG, 5X/DAY
  3. FLUOROURACIL TOPICAL CREAM USP 5% [Suspect]
     Active Substance: FLUOROURACIL
     Dosage: UNK
     Route: 061
     Dates: start: 201609, end: 2016
  4. FLUOROURACIL TOPICAL CREAM USP 5% [Suspect]
     Active Substance: FLUOROURACIL
     Dosage: UNK UNK, 1X/DAY
     Dates: start: 201611, end: 20161126
  5. ROPINIROLE. [Concomitant]
     Active Substance: ROPINIROLE
     Dosage: 4 DOSAGE UNITS, UNK
  6. ^ACMUNPAE^ OR ^ACUMANE^ [Concomitant]

REACTIONS (4)
  - Application site scab [Recovering/Resolving]
  - Application site erythema [Recovering/Resolving]
  - Application site haemorrhage [Recovering/Resolving]
  - Inappropriate schedule of drug administration [Recovered/Resolved]

NARRATIVE: CASE EVENT DATE: 2016
